FAERS Safety Report 5650251-3 (Version None)
Quarter: 2008Q1

REPORT INFORMATION
  Report Type: 
  Country: None (occurrence: None)
  Receive Date: 20080131
  Receipt Date: 20071213
  Transmission Date: 20080703
  Serious: No
  Sender: FDA-Public Use
  Company Number: US200712003081

PATIENT
  Age: 63 Year
  Sex: Female
  Weight: 90.7 kg

DRUGS (2)
  1. BYETTA [Suspect]
     Indication: TYPE 2 DIABETES MELLITUS
     Dosage: 5 UG, 2/D, SUBCUTANEOUS
     Route: 058
     Dates: start: 20070501
  2. ACTOS /USA/ (PIOGLITAZONE HYDROCHLORIDE) [Concomitant]

REACTIONS (5)
  - BLOOD GLUCOSE DECREASED [None]
  - COUGH [None]
  - DIZZINESS [None]
  - NASOPHARYNGITIS [None]
  - WEIGHT DECREASED [None]
